FAERS Safety Report 16739996 (Version 1)
Quarter: 2019Q3

REPORT INFORMATION
  Report Type: Spontaneous
  Country: US (occurrence: US)
  Receive Date: 20190826
  Receipt Date: 20190826
  Transmission Date: 20191005
  Serious: Yes (Hospitalization)
  Sender: FDA-Public Use
  Company Number: US-MYLANLABS-2019M1078913

PATIENT
  Age: 20 Year
  Sex: Male
  Weight: 111 kg

DRUGS (4)
  1. FLUMAZENIL. [Suspect]
     Active Substance: FLUMAZENIL
     Indication: LOSS OF CONSCIOUSNESS
  2. NARCAN [Suspect]
     Active Substance: NALOXONE HYDROCHLORIDE
     Indication: AGITATION
     Route: 065
  3. FLUMAZENIL. [Suspect]
     Active Substance: FLUMAZENIL
     Indication: AGITATION
     Route: 065
  4. NARCAN [Suspect]
     Active Substance: NALOXONE HYDROCHLORIDE
     Indication: LOSS OF CONSCIOUSNESS

REACTIONS (1)
  - Drug ineffective [Unknown]
